FAERS Safety Report 13772403 (Version 2)
Quarter: 2017Q3

REPORT INFORMATION
  Report Type: Spontaneous
  Country: US (occurrence: US)
  Receive Date: 20170720
  Receipt Date: 20170920
  Transmission Date: 20171127
  Serious: Yes (Hospitalization, Other)
  Sender: FDA-Public Use
  Company Number: US-ASTRAZENECA-2017SE72420

PATIENT
  Age: 808 Month
  Sex: Male
  Weight: 66.7 kg

DRUGS (1)
  1. SYMBICORT [Suspect]
     Active Substance: BUDESONIDE\FORMOTEROL FUMARATE DIHYDRATE
     Indication: CHRONIC OBSTRUCTIVE PULMONARY DISEASE
     Dosage: 160/4.5 MCG TWO INHALATIONS TWICE A DAY
     Route: 055
     Dates: start: 2009

REACTIONS (10)
  - Drug dose omission [Not Recovered/Not Resolved]
  - Intentional product misuse [Not Recovered/Not Resolved]
  - Post procedural complication [Not Recovered/Not Resolved]
  - Product packaging quantity issue [Unknown]
  - Road traffic accident [Unknown]
  - Retinal injury [Recovered/Resolved]
  - Cataract [Unknown]
  - Wrong technique in device usage process [Not Recovered/Not Resolved]
  - Intentional product use issue [Not Recovered/Not Resolved]
  - Visual impairment [Not Recovered/Not Resolved]

NARRATIVE: CASE EVENT DATE: 201707
